FAERS Safety Report 4876378-1 (Version None)
Quarter: 2006Q1

REPORT INFORMATION
  Report Type: 
  Country: None (occurrence: None)
  Receive Date: 20060110
  Receipt Date: 20060103
  Transmission Date: 20060701
  Serious: Yes (Hospitalization)
  Sender: FDA-Public Use
  Company Number: PHEH2006US00450

PATIENT
  Sex: Male

DRUGS (2)
  1. CLOZARIL [Suspect]
     Dosage: UNK, UNK
     Dates: start: 20010101
  2. LITHIUM [Suspect]
     Dosage: UNK, UNK
     Dates: end: 20050701

REACTIONS (2)
  - RENAL FUNCTION TEST ABNORMAL [None]
  - STRESS [None]
